FAERS Safety Report 11371009 (Version 1)
Quarter: 2015Q3

REPORT INFORMATION
  Report Type: Spontaneous
  Country: US (occurrence: US)
  Receive Date: 20150812
  Receipt Date: 20150812
  Transmission Date: 20151125
  Serious: No
  Sender: FDA-Public Use
  Company Number: US-009507513-1508USA003725

PATIENT
  Sex: Female

DRUGS (1)
  1. ASMANEX [Suspect]
     Active Substance: MOMETASONE FUROATE
     Indication: ASTHMA
     Dosage: 220 MICROGRAM, UNK
     Route: 055

REACTIONS (6)
  - Bronchitis [Recovering/Resolving]
  - Laryngitis [Recovering/Resolving]
  - Oropharyngeal pain [Recovering/Resolving]
  - Product quality issue [Unknown]
  - Respiratory tract congestion [Recovering/Resolving]
  - Drug dose omission [Unknown]
